FAERS Safety Report 11068564 (Version 2)
Quarter: 2015Q2

REPORT INFORMATION
  Report Type: Spontaneous
  Country: DE (occurrence: DE)
  Receive Date: 20150427
  Receipt Date: 20150511
  Transmission Date: 20150821
  Serious: Yes (Death, Other)
  Sender: FDA-Public Use
  Company Number: DE-BAYER-2015-142353

PATIENT
  Age: 67 Year
  Sex: Female
  Weight: 53 kg

DRUGS (6)
  1. DIGITOXIN [Concomitant]
     Active Substance: DIGITOXIN
  2. BISOPROLOL [Concomitant]
     Active Substance: BISOPROLOL
  3. MARCUMAR [Concomitant]
     Active Substance: PHENPROCOUMON
  4. ADEMPAS [Suspect]
     Active Substance: RIOCIGUAT
     Indication: PULMONARY ARTERIAL HYPERTENSION
     Dosage: 1 MG, QD
  5. PANTOZOL [Concomitant]
     Active Substance: PANTOPRAZOLE SODIUM
  6. SPIRONOLACTON [Concomitant]
     Active Substance: SPIRONOLACTONE

REACTIONS (1)
  - Lung cancer metastatic [Fatal]

NARRATIVE: CASE EVENT DATE: 20150311
